FAERS Safety Report 4380530-1 (Version None)
Quarter: 2004Q2

REPORT INFORMATION
  Report Type: 
  Country: None (occurrence: None)
  Receive Date: 20040614
  Receipt Date: 20040302
  Transmission Date: 20050107
  Serious: Yes (Hospitalization)
  Sender: FDA-Public Use
  Company Number: M04-341-086

PATIENT
  Age: 57 Year
  Sex: Male

DRUGS (4)
  1. VELCADE [Suspect]
     Indication: MULTIPLE MYELOMA
     Dosage: 2.7 ,G PM A 21 DAY CYCLE INTRAVENOUS
     Route: 042
     Dates: start: 20030627, end: 20030821
  2. MORPHINE SULFATE [Concomitant]
  3. PROCHLORPERAZINE [Concomitant]
  4. SENNA [Concomitant]

REACTIONS (1)
  - PARAESTHESIA [None]
